FAERS Safety Report 9804574 (Version 1)
Quarter: 2014Q1

REPORT INFORMATION
  Report Type: Spontaneous
  Country: US (occurrence: US)
  Receive Date: 20140108
  Receipt Date: 20140108
  Transmission Date: 20141002
  Serious: No
  Sender: FDA-Public Use
  Company Number: US-009507513-1401USA002071

PATIENT
  Age: 1 Year
  Sex: Male
  Weight: 11.34 kg

DRUGS (2)
  1. CLARITIN CHEWABLE TABLETS [Suspect]
     Indication: RHINORRHOEA
     Dosage: 5 MG, QD
     Route: 048
     Dates: start: 20131221
  2. CLARITIN CHEWABLE TABLETS [Suspect]
     Indication: SNEEZING

REACTIONS (2)
  - Drug administered to patient of inappropriate age [Recovered/Resolved]
  - Off label use [Recovered/Resolved]
